FAERS Safety Report 9901296 (Version 2)
Quarter: 2014Q2

REPORT INFORMATION
  Report Type: Spontaneous
  Country: US (occurrence: US)
  Receive Date: 20140217
  Receipt Date: 20140512
  Transmission Date: 20141212
  Serious: Yes (Other)
  Sender: FDA-Public Use
  Company Number: US-BAYER-2014-024385

PATIENT
  Age: 22 Year
  Sex: Female

DRUGS (7)
  1. MIRENA [Suspect]
     Dosage: 20 MCG/24HR, CONT
     Route: 015
     Dates: start: 20070605, end: 20080702
  2. ABILIFY [Concomitant]
     Dosage: 5 MG, 1 DAILY
  3. XANAX [Concomitant]
     Dosage: 0.5 MG, QD
  4. ADDERALL [Concomitant]
     Dosage: 30 MG, BID
  5. MTV [Concomitant]
     Dosage: UNK UNK, QD
  6. DEPO PROVERA [Concomitant]
     Dosage: UNK
     Dates: end: 200709
  7. Z-PAK [Concomitant]

REACTIONS (5)
  - Device failure [None]
  - Embedded device [Recovered/Resolved]
  - Injury [None]
  - Pain [None]
  - Emotional distress [None]
